FAERS Safety Report 5113260-9 (Version None)
Quarter: 2006Q3

REPORT INFORMATION
  Report Type: 
  Country: None (occurrence: None)
  Receive Date: 20060922
  Receipt Date: 20060918
  Transmission Date: 20061208
  Serious: Yes (Other)
  Sender: FDA-Public Use
  Company Number: US-BRISTOL-MYERS SQUIBB COMPANY-13513437

PATIENT
  Age: 63 Year
  Sex: Female

DRUGS (15)
  1. ORENCIA [Suspect]
     Indication: RHEUMATOID ARTHRITIS
     Route: 042
     Dates: start: 20060627
  2. ENBREL [Concomitant]
     Dates: start: 20060201, end: 20060601
  3. LEXAPRO [Concomitant]
  4. COMPAZINE [Concomitant]
  5. POTASSIUM [Concomitant]
  6. GINKGO BILOBA [Concomitant]
  7. LEVOXYL [Concomitant]
  8. CALCIUM GLUCONATE [Concomitant]
  9. MULTI-VITAMIN [Concomitant]
  10. CLONAZEPAM [Concomitant]
  11. FOSAMAX [Concomitant]
  12. VITAMIN D [Concomitant]
  13. VITAMIN E [Concomitant]
  14. ASPIRIN [Concomitant]
  15. GARLIC [Concomitant]

REACTIONS (4)
  - BACK PAIN [None]
  - COCCIDIOIDOMYCOSIS [None]
  - HEADACHE [None]
  - NAUSEA [None]
